FAERS Safety Report 13381190 (Version 2)
Quarter: 2017Q3

REPORT INFORMATION
  Report Type: Spontaneous
  Country: US (occurrence: US)
  Receive Date: 20170329
  Receipt Date: 20170706
  Transmission Date: 20171127
  Serious: No
  Sender: FDA-Public Use
  Company Number: US-PFIZER INC-2017134534

PATIENT
  Age: 84 Year
  Sex: Female
  Weight: 53 kg

DRUGS (1)
  1. CHANTIX [Suspect]
     Active Substance: VARENICLINE TARTRATE
     Indication: SMOKING CESSATION THERAPY
     Dosage: 5 MG, 2X/DAY
     Dates: start: 201703, end: 201703

REACTIONS (2)
  - Vomiting [Unknown]
  - Drug ineffective [Unknown]
